FAERS Safety Report 20704979 (Version 1)
Quarter: 2022Q2

REPORT INFORMATION
  Report Type: Spontaneous
  Country: US (occurrence: US)
  Receive Date: 20220413
  Receipt Date: 20220413
  Transmission Date: 20220721
  Serious: Yes (Hospitalization)
  Sender: FDA-Public Use
  Company Number: US-GLAXOSMITHKLINE-US2022061637

PATIENT
  Age: 66 Year
  Sex: Female

DRUGS (1)
  1. LAMICTAL XR [Suspect]
     Active Substance: LAMOTRIGINE
     Indication: Seizure
     Dosage: 3 DF, QD, 50 MG
     Route: 048

REACTIONS (2)
  - Hand fracture [Unknown]
  - Fall [Unknown]

NARRATIVE: CASE EVENT DATE: 20200101
